FAERS Safety Report 25030164 (Version 1)
Quarter: 2025Q1

REPORT INFORMATION
  Report Type: Spontaneous
  Country: ES (occurrence: ES)
  Receive Date: 20250303
  Receipt Date: 20250303
  Transmission Date: 20250409
  Serious: Yes (Death, Disabling, Other)
  Sender: GILEAD
  Company Number: ES-GILEAD-2025-0705224

PATIENT
  Age: 42 Year
  Sex: Male

DRUGS (1)
  1. BIKTARVY [Suspect]
     Active Substance: BICTEGRAVIR SODIUM\EMTRICITABINE\TENOFOVIR ALAFENAMIDE FUMARATE
     Indication: Product used for unknown indication
     Route: 065

REACTIONS (3)
  - Death [Fatal]
  - Incorrect route of product administration [Unknown]
  - Viral load decreased [Unknown]

NARRATIVE: CASE EVENT DATE: 20250216
